FAERS Safety Report 9365263 (Version 2)
Quarter: 2013Q3

REPORT INFORMATION
  Report Type: Spontaneous
  Country: US (occurrence: US)
  Receive Date: 20130625
  Receipt Date: 20130917
  Transmission Date: 20140515
  Serious: Yes (Hospitalization, Other)
  Sender: FDA-Public Use
  Company Number: US-MERCK-1306USA010816

PATIENT
  Age: 71 Year
  Sex: Male

DRUGS (7)
  1. JANUVIA [Suspect]
     Indication: TYPE 2 DIABETES MELLITUS
     Dosage: UNK UNK, QD
     Route: 048
     Dates: start: 2011, end: 2013
  2. JANUVIA [Suspect]
     Dosage: 100 MG, QD
     Route: 048
     Dates: start: 2013
  3. PREDNISONE [Suspect]
     Indication: RASH
     Route: 048
  4. HYDROCHLOROTHIAZIDE [Suspect]
  5. BLACKMORES LYPRINOL [Concomitant]
     Dosage: 300 MG, UNK
  6. ATORVASTATIN [Concomitant]
     Dosage: 40 MG, QD
  7. DIOVAN [Concomitant]
     Dosage: 160 MG, QD

REACTIONS (1)
  - Pancreatitis acute [Recovered/Resolved]
